FAERS Safety Report 5813573-9 (Version None)
Quarter: 2008Q3

REPORT INFORMATION
  Report Type: 
  Country: None (occurrence: None)
  Receive Date: 20080717
  Receipt Date: 20080710
  Transmission Date: 20090109
  Serious: Yes (Death, Life-Threatening, Other)
  Sender: FDA-Public Use
  Company Number: FR-BRISTOL-MYERS SQUIBB COMPANY-14244172

PATIENT
  Age: 76 Year
  Sex: Female

DRUGS (5)
  1. SPRYCEL [Suspect]
     Indication: ACUTE LYMPHOCYTIC LEUKAEMIA
     Dosage: INTERRUPTED ON 08APR08,RESTARTED ON 16APR08 TO 29APR08, 100 MG, ORAL.
     Route: 048
     Dates: start: 20080331, end: 20080421
  2. VINCRISTINE SULFATE [Suspect]
     Indication: ACUTE LYMPHOCYTIC LEUKAEMIA
     Dosage: TAKEN ON DAYS 1, 15 AND 22. A TOTAL
     Route: 042
     Dates: start: 20080331, end: 20080421
  3. DEXAMETHASONE [Suspect]
     Indication: ACUTE LYMPHOCYTIC LEUKAEMIA
     Dosage: NOT IN CONTINUOUS ACCORDING TO PROTOCOL
     Route: 048
     Dates: start: 20080321, end: 20080422
  4. HYTACAND [Concomitant]
     Indication: HYPERTENSION
  5. CELECTOL [Concomitant]
     Indication: HYPERTENSION

REACTIONS (5)
  - CACHEXIA [None]
  - CEREBELLAR SYNDROME [None]
  - COGNITIVE DISORDER [None]
  - CONFUSIONAL STATE [None]
  - RENAL FAILURE [None]
